FAERS Safety Report 25983349 (Version 1)
Quarter: 2025Q4

REPORT INFORMATION
  Report Type: Spontaneous
  Country: CA (occurrence: CA)
  Receive Date: 20251031
  Receipt Date: 20251031
  Transmission Date: 20260118
  Serious: Yes (Other)
  Sender: TEVA
  Company Number: CA-TEVA-VS-3386767

PATIENT
  Age: 78 Year
  Sex: Female
  Weight: 48 kg

DRUGS (11)
  1. CANDESARTAN [Suspect]
     Active Substance: CANDESARTAN
     Indication: Left ventricular dysfunction
     Route: 048
  2. CANDESARTAN [Suspect]
     Active Substance: CANDESARTAN
     Indication: Left ventricular dysfunction
     Route: 048
  3. PANTOPRAZOLE SODIUM [Concomitant]
     Active Substance: PANTOPRAZOLE SODIUM
     Indication: Product used for unknown indication
     Dosage: PANTOLOC /01263204/, DOSE FORM: NOT SPECIFIED
     Route: 065
  4. VALSARTAN [Suspect]
     Active Substance: VALSARTAN
     Indication: Left ventricular dysfunction
     Dosage: DOSE FORM: NOT SPECIFIED
     Route: 065
  5. NORVASC [Concomitant]
     Active Substance: AMLODIPINE BESYLATE
     Indication: Product used for unknown indication
     Route: 065
  6. SOTALOL [Concomitant]
     Active Substance: SOTALOL
     Indication: Product used for unknown indication
     Route: 065
  7. WARFARIN [Concomitant]
     Active Substance: WARFARIN
     Indication: Product used for unknown indication
     Route: 065
  8. NORTRIPTYLINE [Concomitant]
     Active Substance: NORTRIPTYLINE
     Indication: Product used for unknown indication
     Route: 065
  9. COLACE [Concomitant]
     Active Substance: DOCUSATE SODIUM
     Indication: Product used for unknown indication
     Dosage: DOSE FORM: NOT SPECIFIED
     Route: 065
  10. FERAMAX [Concomitant]
     Active Substance: IRON\POLYSACCHARIDES
     Indication: Product used for unknown indication
     Dosage: DOSE FORM: NOT SPECIFIED
     Route: 065
  11. LEVOTHYROXINE [Concomitant]
     Active Substance: LEVOTHYROXINE
     Indication: Product used for unknown indication
     Dosage: DOSE FORM: NOT SPECIFIED
     Route: 065

REACTIONS (5)
  - Arthralgia [Recovered/Resolved]
  - Swelling [Recovered/Resolved]
  - Joint effusion [Recovered/Resolved]
  - Joint stiffness [Recovered/Resolved]
  - Rash [Recovered/Resolved]
